FAERS Safety Report 17862006 (Version 1)
Quarter: 2020Q2

REPORT INFORMATION
  Report Type: Spontaneous
  Country: US (occurrence: US)
  Receive Date: 20200604
  Receipt Date: 20200604
  Transmission Date: 20200714
  Serious: Yes (Death)
  Sender: FDA-Public Use
  Company Number: US-JNJFOC-20200536775

PATIENT
  Sex: Female
  Weight: 90.8 kg

DRUGS (1)
  1. XARELTO [Suspect]
     Active Substance: RIVAROXABAN
     Indication: PULMONARY EMBOLISM
     Dosage: MAYBE 10 TO 15 MG TWICE A DAY, MAYBE TWICE A DAY
     Route: 048
     Dates: start: 201802

REACTIONS (2)
  - Treatment noncompliance [Unknown]
  - Myocardial infarction [Fatal]
